FAERS Safety Report 12586251 (Version 1)
Quarter: 2016Q3

REPORT INFORMATION
  Report Type: Spontaneous
  Country: US (occurrence: US)
  Receive Date: 20160725
  Receipt Date: 20160725
  Transmission Date: 20161109
  Serious: No
  Sender: FDA-Public Use
  Company Number: US-JAZZ-2016-US-001853

PATIENT
  Age: 34 Year
  Sex: Male
  Weight: 77.9 kg

DRUGS (4)
  1. XYREM [Suspect]
     Active Substance: SODIUM OXYBATE
     Dosage: 3 G, BID
     Route: 048
     Dates: start: 201602, end: 20160212
  2. XYREM [Suspect]
     Active Substance: SODIUM OXYBATE
     Indication: NARCOLEPSY
     Dosage: 2.25 G, BID
     Route: 048
     Dates: start: 20160130, end: 201602
  3. XYREM [Suspect]
     Active Substance: SODIUM OXYBATE
     Dosage: 3.75 G, BID
     Route: 048
     Dates: start: 20160213, end: 2016
  4. DEXTROAMPHETAMINE. [Concomitant]
     Active Substance: DEXTROAMPHETAMINE
     Indication: NARCOLEPSY
     Dosage: BID
     Dates: start: 20160111

REACTIONS (7)
  - Drug ineffective [Unknown]
  - Vomiting [Unknown]
  - Somnolence [Unknown]
  - Abasia [Unknown]
  - Headache [Unknown]
  - Diarrhoea [Unknown]
  - Dizziness [Unknown]

NARRATIVE: CASE EVENT DATE: 20160213
